FAERS Safety Report 24365632 (Version 2)
Quarter: 2024Q4

REPORT INFORMATION
  Report Type: Spontaneous
  Country: CZ (occurrence: CZ)
  Receive Date: 20240926
  Receipt Date: 20241011
  Transmission Date: 20250115
  Serious: Yes (Hospitalization, Other)
  Sender: BRISTOL MYERS SQUIBB
  Company Number: CZ-BRISTOL-MYERS SQUIBB COMPANY-2024-147948

PATIENT
  Age: 66 Year
  Sex: Male

DRUGS (4)
  1. IPILIMUMAB [Suspect]
     Active Substance: IPILIMUMAB
     Indication: Clear cell renal cell carcinoma
     Dates: start: 202112
  2. NIVOLUMAB [Suspect]
     Active Substance: NIVOLUMAB
     Indication: Clear cell renal cell carcinoma
     Dates: start: 202112
  3. NIVOLUMAB [Suspect]
     Active Substance: NIVOLUMAB
     Dates: start: 202203
  4. NIVOLUMAB [Suspect]
     Active Substance: NIVOLUMAB
     Dates: start: 202205

REACTIONS (2)
  - Immune-mediated encephalopathy [Recovered/Resolved]
  - Giant cell arteritis [Recovered/Resolved]

NARRATIVE: CASE EVENT DATE: 20220401
